FAERS Safety Report 24011221 (Version 1)
Quarter: 2024Q2

REPORT INFORMATION
  Report Type: Other
  Country: CN (occurrence: CN)
  Receive Date: 20240625
  Receipt Date: 20240625
  Transmission Date: 20240716
  Serious: Yes (Hospitalization)
  Sender: FDA-Public Use
  Company Number: CN-GE HEALTHCARE-2024CSU006934

PATIENT
  Age: 82 Year
  Sex: Male

DRUGS (1)
  1. OMNIPAQUE [Suspect]
     Active Substance: IOHEXOL
     Indication: Arteriogram
     Dosage: 100 ML, TOTAL
     Route: 042
     Dates: start: 20240605, end: 20240605

REACTIONS (3)
  - Trismus [Recovering/Resolving]
  - Foaming at mouth [Recovering/Resolving]
  - Loss of consciousness [Recovering/Resolving]

NARRATIVE: CASE EVENT DATE: 20240605
